FAERS Safety Report 4426842-4 (Version None)
Quarter: 2004Q3

REPORT INFORMATION
  Report Type: 
  Country: None (occurrence: None)
  Receive Date: 20040816
  Receipt Date: 20040811
  Transmission Date: 20050211
  Serious: Yes (Other)
  Sender: FDA-Public Use
  Company Number: 2004015205

PATIENT
  Age: 37 Year
  Sex: Female
  Weight: 60 kg

DRUGS (4)
  1. PAROXETINE HCL [Suspect]
     Route: 048
  2. TAVOR [Concomitant]
     Route: 048
  3. DIAZEPAM [Concomitant]
     Route: 048
  4. ERGENYL [Concomitant]
     Dosage: 3000MG SINGLE DOSE
     Route: 048

REACTIONS (3)
  - INTENTIONAL OVERDOSE [None]
  - SOMNOLENCE [None]
  - SUICIDE ATTEMPT [None]
